FAERS Safety Report 9148746 (Version 1)
Quarter: 2013Q1

REPORT INFORMATION
  Report Type: Spontaneous
  Country: AT (occurrence: AT)
  Receive Date: 20130308
  Receipt Date: 20130308
  Transmission Date: 20140127
  Serious: Yes (Other)
  Sender: FDA-Public Use
  Company Number: AT-UCBSA-079755

PATIENT
  Sex: Female

DRUGS (4)
  1. VIMPAT [Suspect]
     Indication: EPILEPSY
     Dosage: DOSE REDUCED
     Route: 048
  2. VIMPAT [Suspect]
     Indication: EPILEPSY
     Route: 048
  3. CONVULEX [Concomitant]
     Indication: EPILEPSY
     Dosage: 300 MG/DAY
  4. TOPIRAMATE [Concomitant]
     Indication: EPILEPSY
     Dosage: 50 MG/DAY

REACTIONS (1)
  - Status epilepticus [Recovered/Resolved]
